FAERS Safety Report 23669537 (Version 1)
Quarter: 2024Q1

REPORT INFORMATION
  Report Type: Spontaneous
  Country: AT (occurrence: AT)
  Receive Date: 20240325
  Receipt Date: 20240325
  Transmission Date: 20240409
  Serious: Yes (Death)
  Sender: FDA-Public Use
  Company Number: AT-PPDUS-2024ST001849

PATIENT
  Age: 65 Year
  Sex: Male

DRUGS (2)
  1. ELZONRIS [Suspect]
     Active Substance: TAGRAXOFUSP-ERZS
     Indication: Acute myeloid leukaemia recurrent
     Route: 042
     Dates: start: 20240208, end: 20240314
  2. Venetoclax/Azacitidin [Concomitant]
     Indication: Acute myeloid leukaemia recurrent

REACTIONS (2)
  - Disease progression [Fatal]
  - Off label use [Unknown]
